FAERS Safety Report 18269213 (Version 1)
Quarter: 2020Q3

REPORT INFORMATION
  Report Type: Spontaneous
  Country: US (occurrence: US)
  Receive Date: 20200915
  Receipt Date: 20200915
  Transmission Date: 20201103
  Serious: Yes (Other)
  Sender: FDA-Public Use
  Company Number: US-BAYER-2020-189418

PATIENT
  Age: 25 Year
  Sex: Female

DRUGS (1)
  1. LEVONORGESTREL IUS [UNKNOWN] [Suspect]
     Active Substance: LEVONORGESTREL
     Indication: ENDOMETRIOSIS
     Route: 015

REACTIONS (5)
  - Product use in unapproved indication [None]
  - Bronchiectasis [Not Recovered/Not Resolved]
  - Menstruation irregular [None]
  - Off label use of device [None]
  - Haemoptysis [Recovered/Resolved]
